FAERS Safety Report 21962897 (Version 1)
Quarter: 2023Q1

REPORT INFORMATION
  Report Type: Spontaneous
  Country: DE (occurrence: DE)
  Receive Date: 20230207
  Receipt Date: 20230207
  Transmission Date: 20230418
  Serious: Yes (Other)
  Sender: FDA-Public Use
  Company Number: None

PATIENT
  Age: 48 Year
  Sex: Female

DRUGS (4)
  1. RISPERIDONE [Suspect]
     Active Substance: RISPERIDONE
     Indication: Product used for unknown indication
     Dosage: 1-0-1; EINNAHME CA. SECHS WOCHEN
     Route: 065
     Dates: start: 2004, end: 2004
  2. HALOPERIDOL [Suspect]
     Active Substance: HALOPERIDOL
     Indication: Product used for unknown indication
     Dosage: 3X/TAG; EINNAHME CA. 2-3 TAGE IM JAHR 2004
     Route: 065
     Dates: start: 2004, end: 2004
  3. TAVOR (LORAZEPAM) [Suspect]
     Active Substance: LORAZEPAM
     Indication: Product used for unknown indication
     Dosage: 3X/TAG; EINNAHME CA. 2-3 TAGE IM JAHR 2004
     Route: 065
     Dates: start: 2004, end: 2004
  4. AKINETON [Suspect]
     Active Substance: BIPERIDEN HYDROCHLORIDE
     Indication: Product used for unknown indication
     Dosage: 3X/TAG; EINNAHME CA. 2-3 TAGE IM JAHR 2004
     Route: 065
     Dates: start: 2004, end: 2004

REACTIONS (10)
  - Blood prolactin increased [Unknown]
  - Glaucoma [Unknown]
  - Optic nerve injury [Unknown]
  - Nystagmus [Unknown]
  - Swelling of eyelid [Unknown]
  - Visual impairment [Unknown]
  - Cataract operation [Unknown]
  - Face oedema [Unknown]
  - Vestibular disorder [Unknown]
  - Movement disorder [Unknown]

NARRATIVE: CASE EVENT DATE: 20040101
